FAERS Safety Report 19057953 (Version 1)
Quarter: 2021Q1

REPORT INFORMATION
  Report Type: Spontaneous
  Country: US (occurrence: US)
  Receive Date: 20210324
  Receipt Date: 20210324
  Transmission Date: 20210420
  Serious: No
  Sender: FDA-Public Use
  Company Number: US-TEVA-2021-US-1893450

PATIENT
  Sex: Female

DRUGS (10)
  1. OCREVUS [Concomitant]
     Active Substance: OCRELIZUMAB
     Route: 065
  2. VITAMIN D [Concomitant]
     Active Substance: VITAMIN D NOS
     Route: 065
  3. METROCREAM [Concomitant]
     Active Substance: METRONIDAZOLE
     Route: 065
  4. TYLENOL [Concomitant]
     Active Substance: ACETAMINOPHEN
     Route: 065
  5. KETAMINE [Concomitant]
     Active Substance: KETAMINE
     Route: 065
  6. COPAXONE [Suspect]
     Active Substance: GLATIRAMER ACETATE
     Indication: MULTIPLE SCLEROSIS
     Dosage: FORM OF STRENGTH: UNKNOWN
     Route: 065
  7. LORATADINE. [Concomitant]
     Active Substance: LORATADINE
     Route: 065
  8. ADDERALL XR [Concomitant]
     Active Substance: AMPHETAMINE ASPARTATE\AMPHETAMINE SULFATE\DEXTROAMPHETAMINE SACCHARATE\DEXTROAMPHETAMINE SULFATE
     Route: 065
  9. BENADRYL [Concomitant]
     Active Substance: DIPHENHYDRAMINE HYDROCHLORIDE
     Route: 065
  10. AMPHETAMINE [Concomitant]
     Active Substance: AMPHETAMINE

REACTIONS (1)
  - Therapeutic product effect decreased [Unknown]
